FAERS Safety Report 9461502 (Version 2)
Quarter: 2013Q4

REPORT INFORMATION
  Report Type: Report from Study
  Country: US (occurrence: US)
  Receive Date: 20130816
  Receipt Date: 20131011
  Transmission Date: 20140711
  Serious: Yes (Other)
  Sender: FDA-Public Use
  Company Number: US-UCBSA-095014

PATIENT
  Age: 32 Year
  Sex: Female
  Weight: 64.9 kg

DRUGS (3)
  1. CERTOLIZUMAB PEGOL [Suspect]
     Indication: PSORIATIC ARTHROPATHY
     Dosage: NO. OF DOSES RECEIVED: 45
     Route: 058
     Dates: start: 20100909, end: 20130807
  2. METHOTREXATE [Concomitant]
     Indication: PSORIATIC ARTHROPATHY
     Route: 048
     Dates: start: 20100716, end: 20130807
  3. FOLIC ACID [Concomitant]
     Indication: PROPHYLAXIS
     Route: 048
     Dates: start: 20100716

REACTIONS (2)
  - Pregnancy on contraceptive [Unknown]
  - Pregnancy [Recovered/Resolved]
